FAERS Safety Report 15643243 (Version 3)
Quarter: 2019Q2

REPORT INFORMATION
  Report Type: Spontaneous
  Country: US (occurrence: US)
  Receive Date: 20181121
  Receipt Date: 20190429
  Transmission Date: 20190711
  Serious: Yes (Other)
  Sender: FDA-Public Use
  Company Number: US-SA-2018SA317580

PATIENT
  Sex: Male
  Weight: 102.04 kg

DRUGS (12)
  1. OXYCODONE AND ACETAMINOPHEN [Concomitant]
     Active Substance: ACETAMINOPHEN\OXYCODONE HYDROCHLORIDE
  2. DICYCLOMINE [DICYCLOVERINE] [Concomitant]
  3. CARAFATE [Concomitant]
     Active Substance: SUCRALFATE
  4. TRIAMCINOLONE ACETONIDE. [Concomitant]
     Active Substance: TRIAMCINOLONE ACETONIDE
  5. PROMETHAZINE - CODEINE [CODEINE PHOSPHATE;PROMETHAZINE HYDROCHLORIDE] [Concomitant]
  6. DUPIXENT [Suspect]
     Active Substance: DUPILUMAB
     Indication: DERMATITIS ATOPIC
     Dosage: 300 MG, QOW
     Route: 058
     Dates: start: 20180401
  7. ESCITALOPRAM [Concomitant]
     Active Substance: ESCITALOPRAM OXALATE
  8. MULTIVITAMIN [VITAMINS NOS] [Concomitant]
  9. PANTOPRAZOLE [Concomitant]
     Active Substance: PANTOPRAZOLE
  10. FLUOXETINE [Concomitant]
     Active Substance: FLUOXETINE HYDROCHLORIDE
  11. KETOCONAZOLE. [Concomitant]
     Active Substance: KETOCONAZOLE
  12. PAROXETINE. [Concomitant]
     Active Substance: PAROXETINE

REACTIONS (6)
  - Benign neoplasm of spinal cord [Unknown]
  - Seizure [Unknown]
  - Pruritus [Unknown]
  - Unevaluable event [Unknown]
  - Injection site bruising [Unknown]
  - Back pain [Unknown]
